FAERS Safety Report 7610953-6 (Version None)
Quarter: 2011Q3

REPORT INFORMATION
  Report Type: 
  Country: None (occurrence: None)
  Receive Date: 20110715
  Receipt Date: 20110708
  Transmission Date: 20111222
  Serious: Yes (Life-Threatening, Hospitalization, Other)
  Sender: FDA-Public Use
  Company Number: PHHY2011AU39045

PATIENT
  Sex: Male

DRUGS (1)
  1. CERTICAN [Suspect]
     Indication: PROPHYLAXIS AGAINST TRANSPLANT REJECTION
     Dosage: 0.75 MG, BID
     Route: 048

REACTIONS (4)
  - RENAL FAILURE [None]
  - HAEMOLYSIS [None]
  - GASTROENTERITIS [None]
  - SEPTIC SHOCK [None]
